FAERS Safety Report 8445870-5 (Version None)
Quarter: 2012Q2

REPORT INFORMATION
  Report Type: 
  Country: None (occurrence: None)
  Receive Date: 20120323
  Receipt Date: 20110520
  Transmission Date: 20120825
  Serious: Yes (Hospitalization)
  Sender: FDA-Public Use
  Company Number: 163-21880-11052641

PATIENT
  Age: 82 Year
  Sex: Female

DRUGS (9)
  1. MULTIVITAMIN [Concomitant]
  2. PREDNISONE TAB [Concomitant]
  3. REVLIMID [Suspect]
     Indication: MYELODYSPLASTIC SYNDROME
     Dosage: 10 MG, DAILY FOR 28 DAYS, PO
     Route: 048
     Dates: start: 20110405, end: 20110101
  4. DONEPEZIL HCL [Concomitant]
  5. CITRACAL +(CITRACAL + D) [Concomitant]
  6. WAL-ZYR (CETIRIZINE HYDROCHLORIDE) [Concomitant]
  7. DANAZOL [Concomitant]
  8. NAMENDA [Concomitant]
  9. TEMAZEPAM [Concomitant]

REACTIONS (1)
  - CONFUSIONAL STATE [None]
